FAERS Safety Report 16367257 (Version 1)
Quarter: 2019Q2

REPORT INFORMATION
  Report Type: Spontaneous
  Country: US (occurrence: US)
  Receive Date: 20190423
  Receipt Date: 20190423
  Transmission Date: 20190711
  Serious: No
  Sender: FDA-Public Use
  Company Number: None

PATIENT
  Age: 60 Year
  Sex: Female
  Weight: 67.13 kg

DRUGS (1)
  1. COSENTYX [Suspect]
     Active Substance: SECUKINUMAB
     Indication: PSORIATIC ARTHROPATHY
     Dosage: INJECT 150MG (1 PEN) SUBCUTANEOUSLY ONCE A  WEEK FOR 5 WEEKS AS DIRECTED
     Route: 058
     Dates: start: 201805

REACTIONS (1)
  - Spinal cord operation [None]
